FAERS Safety Report 6564594-2 (Version None)
Quarter: 2010Q1

REPORT INFORMATION
  Report Type: 
  Country: None (occurrence: None)
  Receive Date: 20100201
  Receipt Date: 20100120
  Transmission Date: 20100710
  Serious: Yes (Other)
  Sender: FDA-Public Use
  Company Number: PHEH2009US15412

PATIENT
  Sex: Female

DRUGS (5)
  1. EXJADE [Suspect]
     Indication: THALASSAEMIA
     Dosage: 1 G, DAILY
     Route: 048
     Dates: start: 20060101, end: 20071101
  2. EXJADE [Suspect]
     Indication: IRON OVERLOAD
     Dosage: UNK
     Route: 048
     Dates: start: 20080701
  3. EXJADE [Suspect]
     Dosage: 750 MG, DAILY
     Dates: end: 20091001
  4. DESFERAL [Suspect]
     Indication: SERUM FERRITIN INCREASED
     Dosage: UNK
     Route: 065
     Dates: start: 20071101
  5. DESFERAL [Suspect]
     Route: 065

REACTIONS (6)
  - DIARRHOEA [None]
  - INFLUENZA [None]
  - PAIN [None]
  - PYREXIA [None]
  - SERUM FERRITIN INCREASED [None]
  - TREATMENT NONCOMPLIANCE [None]
